FAERS Safety Report 5298539-2 (Version None)
Quarter: 2007Q2

REPORT INFORMATION
  Report Type: 
  Country: None (occurrence: None)
  Receive Date: 20070409
  Receipt Date: 20070326
  Transmission Date: 20071010
  Serious: Yes (Hospitalization, Other)
  Sender: FDA-Public Use
  Company Number: GXKR2007US02905

PATIENT
  Age: 82 Year
  Sex: Female

DRUGS (3)
  1. HYDROCHLOROTHIAZIDE [Suspect]
     Indication: OEDEMA
  2. ACETAMINOPHEN AND OXYCODONE HCL [Concomitant]
  3. BUDESONIDE [Concomitant]

REACTIONS (12)
  - ANGIOEDEMA [None]
  - CONDITION AGGRAVATED [None]
  - DRUG HYPERSENSITIVITY [None]
  - DYSPHAGIA [None]
  - DYSPNOEA [None]
  - GOUT [None]
  - HYPERTENSION [None]
  - LOCAL SWELLING [None]
  - OROPHARYNGEAL SWELLING [None]
  - RASH [None]
  - SWELLING FACE [None]
  - TONGUE OEDEMA [None]
